FAERS Safety Report 19483094 (Version 53)
Quarter: 2024Q2

REPORT INFORMATION
  Report Type: Report from Study
  Country: CA (occurrence: CA)
  Receive Date: 20210701
  Receipt Date: 20240531
  Transmission Date: 20240716
  Serious: Yes (Hospitalization, Other)
  Sender: FDA-Public Use
  Company Number: CA-TAKEDA-CA202025671

PATIENT
  Age: 25 Year
  Sex: Male
  Weight: 102 kg

DRUGS (30)
  1. IDURSULFASE [Suspect]
     Active Substance: IDURSULFASE
     Indication: Mucopolysaccharidosis II
     Dosage: 42 MILLIGRAM, 1/WEEK
     Route: 065
     Dates: start: 20090401
  2. IDURSULFASE [Suspect]
     Active Substance: IDURSULFASE
     Dosage: 7 DOSAGE FORM, 1/WEEK
     Route: 065
     Dates: start: 20190401
  3. IDURSULFASE [Suspect]
     Active Substance: IDURSULFASE
     Dosage: 7 DOSAGE FORM, 1/WEEK
     Route: 065
  4. IDURSULFASE [Suspect]
     Active Substance: IDURSULFASE
     Dosage: 7 DOSAGE FORM, 1/WEEK
     Route: 065
  5. IDURSULFASE [Suspect]
     Active Substance: IDURSULFASE
     Dosage: 7 DOSAGE FORM, 1/WEEK
     Route: 065
  6. IDURSULFASE [Suspect]
     Active Substance: IDURSULFASE
     Dosage: 7 DOSAGE FORM, 1/WEEK
     Route: 065
  7. IDURSULFASE [Suspect]
     Active Substance: IDURSULFASE
     Dosage: 7 DOSAGE FORM, 1/WEEK
     Route: 065
  8. IDURSULFASE [Suspect]
     Active Substance: IDURSULFASE
     Dosage: 7 DOSAGE FORM, 1/WEEK
     Route: 065
  9. IDURSULFASE [Suspect]
     Active Substance: IDURSULFASE
     Dosage: 7 DOSAGE FORM, 1/WEEK
     Route: 065
  10. IDURSULFASE [Suspect]
     Active Substance: IDURSULFASE
     Dosage: 7 DOSAGE FORM, 1/WEEK
     Route: 065
  11. IDURSULFASE [Suspect]
     Active Substance: IDURSULFASE
     Dosage: 7 DOSAGE FORM, 1/WEEK
     Route: 050
  12. IDURSULFASE [Suspect]
     Active Substance: IDURSULFASE
     Dosage: 7 DOSAGE FORM, 1/WEEK
     Route: 050
  13. IDURSULFASE [Suspect]
     Active Substance: IDURSULFASE
     Dosage: 7 DOSAGE FORM, 1/WEEK
     Route: 050
  14. IDURSULFASE [Suspect]
     Active Substance: IDURSULFASE
     Dosage: 8 DOSAGE FORM, 1/WEEK
     Route: 050
  15. IDURSULFASE [Suspect]
     Active Substance: IDURSULFASE
     Dosage: 46 MILLIGRAM, 1/WEEK
     Route: 050
  16. IDURSULFASE [Suspect]
     Active Substance: IDURSULFASE
     Dosage: 46 MILLIGRAM, 1/WEEK
     Route: 050
  17. IDURSULFASE [Suspect]
     Active Substance: IDURSULFASE
     Dosage: 46 MILLIGRAM, 1/WEEK
     Route: 050
  18. IDURSULFASE [Suspect]
     Active Substance: IDURSULFASE
     Dosage: 46 MILLIGRAM, 1/WEEK
     Route: 050
  19. IDURSULFASE [Suspect]
     Active Substance: IDURSULFASE
     Dosage: 7 DOSAGE FORM, 1/WEEK
     Route: 065
  20. IDURSULFASE [Suspect]
     Active Substance: IDURSULFASE
     Dosage: 8 DOSAGE FORM, 1/WEEK
     Route: 050
  21. IDURSULFASE [Suspect]
     Active Substance: IDURSULFASE
     Dosage: 46 MILLIGRAM, 1/WEEK
     Route: 050
  22. IDURSULFASE [Suspect]
     Active Substance: IDURSULFASE
     Dosage: 46 MILLIGRAM, 1/WEEK
     Route: 042
  23. IDURSULFASE [Suspect]
     Active Substance: IDURSULFASE
     Dosage: 46 MILLIGRAM, 1/WEEK
     Route: 042
  24. IDURSULFASE [Suspect]
     Active Substance: IDURSULFASE
     Dosage: 48 MILLIGRAM, 1/WEEK
     Route: 042
  25. IDURSULFASE [Suspect]
     Active Substance: IDURSULFASE
     Dosage: UNK UNK, 1/WEEK
     Route: 042
  26. IDURSULFASE [Suspect]
     Active Substance: IDURSULFASE
     Dosage: 48 MILLIGRAM, 1/WEEK
     Route: 050
  27. IDURSULFASE [Suspect]
     Active Substance: IDURSULFASE
     Dosage: 48 MILLIGRAM, 1/WEEK
     Route: 050
  28. IDURSULFASE [Suspect]
     Active Substance: IDURSULFASE
     Dosage: 48 MILLIGRAM, 1/WEEK
     Route: 050
  29. IDURSULFASE [Suspect]
     Active Substance: IDURSULFASE
     Dosage: 48 MILLIGRAM, 1/WEEK
     Route: 050
  30. IDURSULFASE [Suspect]
     Active Substance: IDURSULFASE
     Dosage: 48 MILLIGRAM, 1/WEEK
     Route: 050

REACTIONS (39)
  - Laryngeal obstruction [Recovered/Resolved]
  - Throat tightness [Recovered/Resolved]
  - Nasal congestion [Unknown]
  - Depression [Not Recovered/Not Resolved]
  - Cough [Unknown]
  - Anaphylactic reaction [Unknown]
  - Cardiomegaly [Recovered/Resolved]
  - Body temperature decreased [Recovered/Resolved]
  - Heart rate increased [Recovered/Resolved]
  - Somnolence [Unknown]
  - Hypoaesthesia [Unknown]
  - Blood pressure increased [Recovered/Resolved]
  - Eye infection [Not Recovered/Not Resolved]
  - Decreased appetite [Unknown]
  - Road traffic accident [Not Recovered/Not Resolved]
  - Pain [Not Recovered/Not Resolved]
  - Mental disorder [Not Recovered/Not Resolved]
  - Poor venous access [Recovered/Resolved]
  - COVID-19 [Recovered/Resolved]
  - Malaise [Not Recovered/Not Resolved]
  - Weight increased [Unknown]
  - Heat exhaustion [Not Recovered/Not Resolved]
  - Nasopharyngitis [Not Recovered/Not Resolved]
  - Blood pressure fluctuation [Unknown]
  - Anxiety [Unknown]
  - Blood pressure abnormal [Unknown]
  - Fatigue [Unknown]
  - Dizziness [Unknown]
  - Vomiting [Not Recovered/Not Resolved]
  - Headache [Not Recovered/Not Resolved]
  - Dry throat [Not Recovered/Not Resolved]
  - Heart rate abnormal [Not Recovered/Not Resolved]
  - Oral pruritus [Not Recovered/Not Resolved]
  - Flushing [Not Recovered/Not Resolved]
  - Rash [Not Recovered/Not Resolved]
  - Medication error [Unknown]
  - Product dose omission issue [Recovered/Resolved]
  - Incorrect drug administration rate [Unknown]
  - Inappropriate schedule of product administration [Recovered/Resolved]

NARRATIVE: CASE EVENT DATE: 20200805
